FAERS Safety Report 5034198-1 (Version None)
Quarter: 2006Q2

REPORT INFORMATION
  Report Type: 
  Country: None (occurrence: None)
  Receive Date: 20060626
  Receipt Date: 20060228
  Transmission Date: 20061013
  Serious: Yes (Other)
  Sender: FDA-Public Use
  Company Number: JP-JPN-A200600798

PATIENT
  Age: 50 Year
  Sex: Male

DRUGS (2)
  1. VALTREX [Suspect]
     Indication: DRUG USE FOR UNKNOWN INDICATION
     Dosage: 1000MG PER DAY
     Route: 048
     Dates: start: 20060225, end: 20060228
  2. ALLOPURINOL [Concomitant]
     Route: 048

REACTIONS (3)
  - ENCEPHALOPATHY [None]
  - HALLUCINATION [None]
  - MANIA [None]
